FAERS Safety Report 7301378-1 (Version None)
Quarter: 2011Q1

REPORT INFORMATION
  Report Type: 
  Country: None (occurrence: None)
  Receive Date: 20110218
  Receipt Date: 20110215
  Transmission Date: 20110831
  Serious: Yes (Hospitalization)
  Sender: FDA-Public Use
  Company Number: DE-TEVA-266352GER

PATIENT
  Age: 76 Year
  Sex: Female
  Weight: 54 kg

DRUGS (13)
  1. FENTANYL [Suspect]
     Indication: PAIN
     Route: 062
     Dates: start: 20100901, end: 20100930
  2. RAMIPRIL [Concomitant]
     Indication: HYPERTENSION
     Route: 048
     Dates: start: 20100901
  3. LEVODOPA W/BENSERAZIDE/ [Concomitant]
     Indication: PARKINSON'S DISEASE
     Dosage: 100 MG LEVODOPA + 25 MG BENSERAZIDE
     Route: 048
     Dates: start: 20100909
  4. TAVOR 0.5 [Concomitant]
     Indication: BIPOLAR DISORDER
     Route: 048
     Dates: start: 20100901
  5. STALEVO 100 [Concomitant]
     Indication: PARKINSON'S DISEASE
     Dosage: 50 MG LEVODOPA + 12,5 MG CARBIDOPA + 200 MG ENTACAPON.
     Route: 048
     Dates: start: 20100901
  6. LEVODOPA COMP. C STADA 100MG/25MG [Concomitant]
     Indication: PARKINSON'S DISEASE
     Dosage: 100 MG LEVODOPA + 25 MG CARBIDOPA
     Route: 048
     Dates: start: 20100909
  7. FENTANYL [Suspect]
     Route: 062
     Dates: start: 20101001, end: 20101015
  8. IBUPROFEN [Concomitant]
     Indication: PAIN
     Route: 048
     Dates: start: 20100901, end: 20101028
  9. PANTOPRAZOLE [Concomitant]
     Indication: GASTROOESOPHAGEAL REFLUX DISEASE
     Route: 048
     Dates: start: 20100901
  10. FENTANYL [Suspect]
     Route: 062
     Dates: start: 20101016
  11. SEROQUEL [Concomitant]
     Indication: BIPOLAR DISORDER
     Route: 048
     Dates: start: 20100901
  12. NOVAMINSULFON [Concomitant]
     Indication: PAIN
     Route: 048
     Dates: start: 20100901
  13. SIFROL 0.18 [Concomitant]
     Indication: PARKINSON'S DISEASE
     Route: 048
     Dates: start: 20100901

REACTIONS (1)
  - FAECALOMA [None]
